FAERS Safety Report 12501923 (Version 2)
Quarter: 2016Q4

REPORT INFORMATION
  Report Type: Spontaneous
  Country: US (occurrence: US)
  Receive Date: 20160627
  Receipt Date: 20161020
  Transmission Date: 20170207
  Serious: No
  Sender: FDA-Public Use
  Company Number: US-GLAXOSMITHKLINE-CHPA2016US001628

PATIENT
  Sex: Male

DRUGS (2)
  1. PREVACID 24 HR [Suspect]
     Active Substance: LANSOPRAZOLE
     Indication: PRODUCT USED FOR UNKNOWN INDICATION
     Dosage: UNK
     Route: 065
  2. ZANTAC [Suspect]
     Active Substance: RANITIDINE HYDROCHLORIDE
     Indication: GASTROOESOPHAGEAL REFLUX DISEASE
     Dosage: UNK
     Route: 065

REACTIONS (2)
  - Gastrooesophageal reflux disease [Unknown]
  - Drug administered to patient of inappropriate age [Unknown]
